FAERS Safety Report 10459272 (Version 2)
Quarter: 2014Q3

REPORT INFORMATION
  Report Type: Spontaneous
  Country: US (occurrence: US)
  Receive Date: 20140917
  Receipt Date: 20140917
  Transmission Date: 20150326
  Serious: No
  Sender: FDA-Public Use
  Company Number: US-PFIZER INC-2014176664

PATIENT
  Age: 69 Year
  Sex: Male

DRUGS (25)
  1. RAPAMUNE [Suspect]
     Active Substance: SIROLIMUS
     Indication: GRAFT COMPLICATION
     Dosage: 2 MG, DAILY
     Route: 048
     Dates: start: 20140228, end: 20140717
  2. PROSCAR [Concomitant]
     Active Substance: FINASTERIDE
     Dosage: 5 MG, TAKE 1 TAB BY MOUTH DAILY
     Route: 048
  3. NEORAL [Concomitant]
     Active Substance: CYCLOSPORINE
     Dosage: 25 MG, TAKE 4 CAPSULES BY MOUTH TWICE DAILY
     Route: 048
  4. ATACAND [Concomitant]
     Active Substance: CANDESARTAN CILEXETIL
     Dosage: 8 MG, TAKE 1 TAB BY MOUTH DAILY
     Route: 048
  5. ECOTRIN [Concomitant]
     Active Substance: ASPIRIN
     Dosage: 325 MG, TAKE 1 TAB BY MOUTH DAILY
     Route: 048
  6. MYFORTIC [Concomitant]
     Active Substance: MYCOPHENOLATE SODIUM
     Dosage: 360 MG, TAKE 3 TABLETS BY MOUTH TWICE DAILY
     Route: 048
  7. CLARITIN [Concomitant]
     Active Substance: LORATADINE
     Indication: HYPERSENSITIVITY
     Dosage: 10 MG, TAKE 1 TAB BY MOUTH DAILY AS NEEDED
     Route: 048
  8. DIABETA [Concomitant]
     Active Substance: GLYBURIDE
     Dosage: 1.25 MG, TAKE 1 TAB BY MOUTH DAILY WITH BREAKFAST
     Route: 048
  9. SYNTHROID [Concomitant]
     Active Substance: LEVOTHYROXINE SODIUM
     Dosage: 25 UG, TAKE 1 TAB BY MOUTH DAILY BEFORE BREAKFAST
     Route: 048
  10. LIPITOR [Concomitant]
     Active Substance: ATORVASTATIN CALCIUM
     Dosage: 20 MG, TAKE 1.5 TABS BY MOUTH DAILY
     Route: 048
  11. K-DUR [Concomitant]
     Active Substance: POTASSIUM CHLORIDE
     Dosage: 20 MEQ, TAKE 3 TABS IN THE MORNING AND 2 TABS IN THE EVENING
     Route: 048
  12. SEPTRA [Concomitant]
     Active Substance: SULFAMETHOXAZOLE\TRIMETHOPRIM
     Dosage: 400/80 MG, TAKE 1 TAB BY MOUTH DAILY
     Route: 048
  13. NIASPAN [Concomitant]
     Active Substance: NIACIN
     Dosage: 500 MG, TAKE 1 TAB BY MOUTH AT BEDTIME
     Route: 048
  14. SYNTHROID [Concomitant]
     Active Substance: LEVOTHYROXINE SODIUM
     Dosage: 300 UG, TAKE 1 TAB BY MOUTH DAILY BEFORE BREAKFAST
     Route: 048
  15. BENADRYL [Concomitant]
     Active Substance: DIPHENHYDRAMINE HYDROCHLORIDE
     Dosage: 50 MG, UNK
  16. MICRONASE [Concomitant]
     Active Substance: GLYBURIDE
     Dosage: 1.25 MG, TAKE 1 TAB BY MOUTH DAILY WITH BREAKFAST
     Route: 048
  17. ASPIR-TRIN [Concomitant]
     Dosage: 325 MG, TAKE 1 TAB BY MOUTH DAILY
     Route: 048
  18. AMBIEN [Concomitant]
     Active Substance: ZOLPIDEM TARTRATE
     Dosage: 10 MG, TAKE 1 TAB BY MOUTH AT BEDTIME AS NEEDED
     Route: 048
  19. ZOLOFT [Concomitant]
     Active Substance: SERTRALINE HYDROCHLORIDE
     Dosage: 50 MG, DAILY
  20. SLOW-MAG [Concomitant]
     Active Substance: MAGNESIUM CHLORIDE
     Dosage: 64 MG, TAKE 3 TABS BY MOUTH TWICE DAILY
     Route: 048
  21. FLOMAX [Concomitant]
     Active Substance: TAMSULOSIN HYDROCHLORIDE
     Dosage: 0.4 MG, TAKE 1 CAP BY MOUTH DAILY
     Route: 048
  22. SUBLIMAZE [Concomitant]
     Active Substance: FENTANYL CITRATE
     Dosage: 25 UG, UNK
  23. VENTOLIN HFA [Concomitant]
     Active Substance: ALBUTEROL SULFATE
     Indication: WHEEZING
     Dosage: 90 UG, INHALE 1 PUFF IN LUNGS EVERY 4 HOURS AS NEEDED
     Route: 055
  24. BACTRIM [Concomitant]
     Active Substance: SULFAMETHOXAZOLE\TRIMETHOPRIM
     Dosage: 400/80 MG, TAKE 1 TAB BY MOUTH DAILY
     Route: 048
  25. FISH OIL [Concomitant]
     Active Substance: FISH OIL
     Dosage: 1000 MG, TAKE 1000 MG BY MOUTH TWICE DAILY
     Route: 048

REACTIONS (1)
  - Dermatitis [Recovered/Resolved]

NARRATIVE: CASE EVENT DATE: 201404
